FAERS Safety Report 16947530 (Version 1)
Quarter: 2019Q4

REPORT INFORMATION
  Report Type: Spontaneous
  Country: PT (occurrence: PT)
  Receive Date: 20191022
  Receipt Date: 20191022
  Transmission Date: 20200122
  Serious: Yes (Other)
  Sender: FDA-Public Use
  Company Number: PT-FRESENIUS KABI-FK201911681

PATIENT
  Age: 15 Year
  Sex: Male

DRUGS (3)
  1. BUDESONIDE. [Concomitant]
     Active Substance: BUDESONIDE
     Indication: ASTHMA
     Dosage: UNKNOWN
     Route: 055
  2. FLUTICASONE. [Concomitant]
     Active Substance: FLUTICASONE
     Indication: RHINITIS
     Dosage: UNKNOWN
     Route: 045
  3. KETOROLAC TROMETHAMINE INJECTION (MANUFACTURER UNKNOWN) [Suspect]
     Active Substance: KETOROLAC TROMETHAMINE
     Indication: BONE PAIN
     Dosage: UNKNOWN
     Route: 065
     Dates: start: 2016

REACTIONS (1)
  - Anaphylactic reaction [Recovered/Resolved]

NARRATIVE: CASE EVENT DATE: 2016
